FAERS Safety Report 15043959 (Version 1)
Quarter: 2018Q2

REPORT INFORMATION
  Report Type: Spontaneous
  Country: IT (occurrence: IT)
  Receive Date: 20180621
  Receipt Date: 20180621
  Transmission Date: 20180711
  Serious: Yes (Hospitalization)
  Sender: FDA-Public Use
  Company Number: IT-SANIK-2018SA153623AA

PATIENT
  Age: 52 Year
  Sex: Male

DRUGS (8)
  1. PLAVIX [Suspect]
     Active Substance: CLOPIDOGREL BISULFATE
     Indication: THROMBOSIS PROPHYLAXIS
     Route: 048
     Dates: start: 20171201, end: 20171210
  2. CARDIOASPIRIN [Suspect]
     Active Substance: ASPIRIN
     Indication: THROMBOSIS PROPHYLAXIS
     Dosage: 100 MG, QD
     Route: 048
     Dates: start: 20171201, end: 20171210
  3. BROMAZEPAM [Concomitant]
     Active Substance: BROMAZEPAM
  4. HALCION [Concomitant]
     Active Substance: TRIAZOLAM
  5. CORTONE ACETATO [Concomitant]
     Active Substance: CORTISONE ACETATE
  6. FLUOXETINE [Concomitant]
     Active Substance: FLUOXETINE HYDROCHLORIDE
  7. CARVEDILOL. [Concomitant]
     Active Substance: CARVEDILOL
  8. TORVAST [Concomitant]
     Active Substance: ATORVASTATIN

REACTIONS (2)
  - Hemiplegia [Unknown]
  - Cerebral haemorrhage [Unknown]

NARRATIVE: CASE EVENT DATE: 20171210
